FAERS Safety Report 5300219-1 (Version None)
Quarter: 2007Q2

REPORT INFORMATION
  Report Type: 
  Country: None (occurrence: None)
  Receive Date: 20070418
  Receipt Date: 20070411
  Transmission Date: 20071010
  Serious: Yes (Hospitalization)
  Sender: FDA-Public Use
  Company Number: HQWYE876108NOV06

PATIENT
  Age: 51 Year
  Sex: Female

DRUGS (3)
  1. AMIODARONE HCL [Suspect]
     Indication: ATRIAL FIBRILLATION
     Dosage: UNSPECIFIED
     Route: 042
  2. SPIRONOLACTONE [Concomitant]
     Route: 065
  3. FUROSEMIDE [Concomitant]
     Route: 065

REACTIONS (1)
  - BRUGADA SYNDROME [None]
